FAERS Safety Report 8216598-1 (Version None)
Quarter: 2012Q1

REPORT INFORMATION
  Report Type: 
  Country: None (occurrence: None)
  Receive Date: 20120316
  Receipt Date: 20120301
  Transmission Date: 20120608
  Serious: Yes (Life-Threatening, Hospitalization)
  Sender: FDA-Public Use
  Company Number: CHPA2012US004353

PATIENT
  Sex: Female

DRUGS (3)
  1. NICOTINE [Suspect]
     Dosage: 14 MG, QD
     Route: 062
     Dates: start: 20120101, end: 20120101
  2. NICOTINE [Suspect]
     Indication: SMOKING CESSATION THERAPY
     Dosage: 7 MG, QD
     Route: 062
     Dates: start: 20120101, end: 20120201
  3. NICOTINE [Suspect]
     Dosage: 21 MG, QD
     Route: 062
     Dates: start: 20111201, end: 20120101

REACTIONS (4)
  - LOSS OF CONSCIOUSNESS [None]
  - DYSPNOEA [None]
  - ASTHMA [None]
  - PALPITATIONS [None]
